FAERS Safety Report 6479934-2 (Version None)
Quarter: 2009Q4

REPORT INFORMATION
  Report Type: 
  Country: None (occurrence: None)
  Receive Date: 20091208
  Receipt Date: 20091116
  Transmission Date: 20100525
  Serious: Yes (Life-Threatening)
  Sender: FDA-Public Use
  Company Number: FR-SANOFI-AVENTIS-2009SA002536

PATIENT
  Age: 70 Year
  Sex: Female

DRUGS (6)
  1. LOVENOX [Suspect]
     Route: 058
     Dates: start: 20091019, end: 20091027
  2. CEFTRIAXONE [Suspect]
     Indication: PSOAS ABSCESS
     Route: 058
     Dates: start: 20091022, end: 20091027
  3. LANTUS [Concomitant]
     Indication: TYPE 2 DIABETES MELLITUS
     Dosage: DOSE:100 INTERNATIONAL UNIT(S)/MILLILITRE
     Route: 058
  4. EFFERALGAN [Concomitant]
     Route: 048
  5. NOVORAPID [Concomitant]
     Indication: TYPE 2 DIABETES MELLITUS
     Dosage: DOSE:100 INTERNATIONAL UNIT(S)/MILLILITRE
     Route: 058
  6. DURAGESIC-100 [Concomitant]
     Route: 062
     Dates: start: 20091019

REACTIONS (4)
  - ANAEMIA [None]
  - LEUKOPENIA [None]
  - PANCYTOPENIA [None]
  - THROMBOCYTOPENIA [None]
